FAERS Safety Report 11037731 (Version 2)
Quarter: 2015Q2

REPORT INFORMATION
  Report Type: Spontaneous
  Country: JP (occurrence: JP)
  Receive Date: 20150416
  Receipt Date: 20150424
  Transmission Date: 20150821
  Serious: Yes (Hospitalization)
  Sender: FDA-Public Use
  Company Number: JP-009507513-1504JPN002579

PATIENT
  Age: 56 Year
  Sex: Male
  Weight: 64 kg

DRUGS (7)
  1. REMERON [Suspect]
     Active Substance: MIRTAZAPINE
     Dosage: 45 MG PER DAY (DIVIDED DOSE FREQUENCY UNKNOWN)
     Route: 048
     Dates: start: 20150406
  2. ABILIFY [Concomitant]
     Active Substance: ARIPIPRAZOLE
     Indication: DEPRESSION
     Dosage: 12 MG PER DAY (DIVIDED DOSE FREQUENCY UNKNOWN)
     Route: 048
     Dates: start: 20150318
  3. REMERON [Suspect]
     Active Substance: MIRTAZAPINE
     Dosage: 30 MG PER DAY (DIVIDED DOSE FREQUENCY UNKNOWN)
     Route: 048
     Dates: start: 20150312, end: 20150405
  4. ROHYPNOL [Concomitant]
     Active Substance: FLUNITRAZEPAM
     Indication: DEPRESSION
     Dosage: 1 MG PER DAY (DIVIDED DOSE FREQUENCY UNKNOWN)
     Route: 048
     Dates: start: 20150304, end: 20150317
  5. REMERON [Suspect]
     Active Substance: MIRTAZAPINE
     Indication: DEPRESSION
     Dosage: 15 MG PER DAY (DIVIDED DOSE FREQUENCY UNKNOWN)
     Route: 048
     Dates: start: 20150304, end: 20150311
  6. LANDSEN [Concomitant]
     Active Substance: CLONAZEPAM
     Indication: DEPRESSION
     Dosage: 0.5 MG PER DAY (DIVIDED DOSE FREQUENCY UNKNOWN)
     Route: 048
     Dates: start: 20150318, end: 20150407
  7. ZYPREXA [Concomitant]
     Active Substance: OLANZAPINE
     Indication: DEPRESSION
     Dosage: 5 MG PER DAY (DIVIDED DOSE FREQUENCY UNKNOWN)
     Route: 048
     Dates: start: 20150318, end: 20150318

REACTIONS (2)
  - Depression [Recovering/Resolving]
  - Subdural haematoma [Unknown]

NARRATIVE: CASE EVENT DATE: 20150318
